FAERS Safety Report 20440715 (Version 1)
Quarter: 2022Q1

REPORT INFORMATION
  Report Type: Spontaneous
  Country: US (occurrence: US)
  Receive Date: 20220207
  Receipt Date: 20220207
  Transmission Date: 20220423
  Serious: No
  Sender: FDA-Public Use
  Company Number: US-SA-SAC20220202000849

PATIENT
  Sex: Female
  Weight: 104 kg

DRUGS (35)
  1. DUPIXENT [Suspect]
     Active Substance: DUPILUMAB
     Dosage: 300 MG, QOW
     Route: 058
  2. BROVANA [Concomitant]
     Active Substance: ARFORMOTEROL TARTRATE
     Dosage: UNK
  3. BIOTIN [Concomitant]
     Active Substance: BIOTIN
     Dosage: UNK
  4. PANTOPRAZOLE SODIUM [Concomitant]
     Active Substance: PANTOPRAZOLE SODIUM
     Dosage: UNK
  5. TRAMADOL HCL [Concomitant]
     Active Substance: TRAMADOL HYDROCHLORIDE
     Dosage: UNK
  6. LEVAQUIN [Concomitant]
     Active Substance: LEVOFLOXACIN
     Dosage: 50 MG
  7. LOSARTAN AND HYDROCHLOROTHIAZIDE [Concomitant]
     Active Substance: HYDROCHLOROTHIAZIDE\LOSARTAN POTASSIUM
     Dosage: UNK
  8. AMLODIPINE;ATORVASTATIN [Concomitant]
     Dosage: UNK
  9. PROBIOTIC ACIDOPHILUS [LACTOBACILLUS ACIDOPHILUS] [Concomitant]
     Dosage: UNK
  10. VITAMIN C [Concomitant]
     Active Substance: ASCORBIC ACID
     Dosage: UNK
  11. VITAMIN B12 [Concomitant]
     Active Substance: CYANOCOBALAMIN
     Dosage: UNK
  12. VITAMIN B12 [Concomitant]
     Active Substance: CYANOCOBALAMIN
     Dosage: 60MG
  13. DULOXETINE [Concomitant]
     Active Substance: DULOXETINE
     Dosage: UNK
  14. ZYRTEC-D [Concomitant]
     Active Substance: CETIRIZINE HYDROCHLORIDE\PSEUDOEPHEDRINE HYDROCHLORIDE
     Dosage: UNK
  15. PROMETHAZINE [Concomitant]
     Active Substance: PROMETHAZINE HYDROCHLORIDE
     Dosage: UNK
  16. NOMOTIL [Concomitant]
     Dosage: UNK
  17. ZANTAC [Concomitant]
     Active Substance: RANITIDINE HYDROCHLORIDE
     Dosage: UNK
  18. CODEINE [Concomitant]
     Active Substance: CODEINE
     Dosage: 150MG
  19. CLOTRIMAZOLE [Concomitant]
     Active Substance: CLOTRIMAZOLE
     Dosage: UNK
  20. TESSALON [Concomitant]
     Active Substance: BENZONATATE
     Dosage: 100MG
  21. SINGULAIR [Concomitant]
     Active Substance: MONTELUKAST SODIUM
     Dosage: UNK
  22. PROAIR HFA [Concomitant]
     Active Substance: ALBUTEROL SULFATE
     Dosage: 10MG
  23. XOPENEX [Concomitant]
     Active Substance: LEVALBUTEROL HYDROCHLORIDE
     Dosage: 0.25 MG
  24. PULMICORT TURBUHALER [Concomitant]
     Active Substance: BUDESONIDE
     Dosage: 125MG
  25. FENOTEROL\IPRATROPIUM [Concomitant]
     Active Substance: FENOTEROL\IPRATROPIUM
     Dosage: 0.3 MG
  26. ALBUTEROL SULFATE [Concomitant]
     Active Substance: ALBUTEROL SULFATE
     Dosage: UNK
  27. FLUTICASONE PROPIONATE [Concomitant]
     Active Substance: FLUTICASONE PROPIONATE
     Dosage: UNK
  28. EPIPEN [Concomitant]
     Active Substance: EPINEPHRINE
     Dosage: 0.25 MG
  29. ARNUITY ELLIPTA [Concomitant]
     Active Substance: FLUTICASONE FUROATE
     Dosage: UNK
  30. PREDNISONE [Concomitant]
     Active Substance: PREDNISONE
     Dosage: UNK
  31. CEFUROXIME [Concomitant]
     Active Substance: CEFUROXIME
     Dosage: 5MG
  32. SPIRIVA [Concomitant]
     Active Substance: TIOTROPIUM BROMIDE MONOHYDRATE
     Dosage: UNK
  33. ADVAIR HFA [Concomitant]
     Active Substance: FLUTICASONE PROPIONATE\SALMETEROL XINAFOATE
     Dosage: 0.5 MG
  34. GABAPENTIN [Concomitant]
     Active Substance: GABAPENTIN
     Dosage: UNK
  35. SODIUM CHLORIDE [Concomitant]
     Active Substance: SODIUM CHLORIDE
     Dosage: UNK

REACTIONS (1)
  - Sinusitis [Unknown]
